FAERS Safety Report 6928492-4 (Version None)
Quarter: 2010Q3

REPORT INFORMATION
  Report Type: 
  Country: None (occurrence: None)
  Receive Date: 20100817
  Receipt Date: 20100805
  Transmission Date: 20110219
  Serious: Yes (Hospitalization, Other)
  Sender: FDA-Public Use
  Company Number: DE-PFIZER INC-2010080053

PATIENT
  Age: 54 Year
  Sex: Female
  Weight: 64 kg

DRUGS (3)
  1. EPIRUBICIN HYDROCHLORIDE [Suspect]
     Indication: BREAST CANCER FEMALE
     Dosage: 176 MG, EVERY 3 WEEKS
     Route: 042
     Dates: start: 20100427
  2. FLUOROURACIL [Suspect]
     Indication: BREAST CANCER FEMALE
     Dosage: 880 MG, EVERY 3 WEEKS
     Route: 042
     Dates: start: 20100427
  3. CYCLOPHOSPHAMIDE [Suspect]
     Indication: BREAST CANCER FEMALE
     Dosage: 880 MG, EVERY 3 WEEKS
     Route: 042
     Dates: start: 20100427

REACTIONS (1)
  - DIVERTICULITIS [None]
